FAERS Safety Report 21549785 (Version 2)
Quarter: 2023Q1

REPORT INFORMATION
  Report Type: Report from Study
  Country: CA (occurrence: CA)
  Receive Date: 20221103
  Receipt Date: 20230125
  Transmission Date: 20230417
  Serious: Yes (Hospitalization, Other)
  Sender: FDA-Public Use
  Company Number: CA-TAKEDA-2022TUS037404

PATIENT
  Age: 61 Year
  Sex: Female

DRUGS (2)
  1. IXAZOMIB [Suspect]
     Active Substance: IXAZOMIB
     Indication: Glomerulonephritis proliferative
     Dosage: 3 MILLIGRAM
     Route: 048
     Dates: start: 20220523
  2. DEXAMETHASONE [Suspect]
     Active Substance: DEXAMETHASONE
     Indication: Glomerulonephritis proliferative
     Dosage: UNK
     Route: 065
     Dates: start: 20220523

REACTIONS (11)
  - Pancreatitis acute [Unknown]
  - Infection [Unknown]
  - Renal disorder [Unknown]
  - Laryngitis [Unknown]
  - Speech disorder [Unknown]
  - Nerve compression [Unknown]
  - Pain in extremity [Unknown]
  - Cough [Unknown]
  - Fatigue [Unknown]
  - Aphonia [Unknown]
  - Off label use [Unknown]

NARRATIVE: CASE EVENT DATE: 20220523
